FAERS Safety Report 12987337 (Version 2)
Quarter: 2016Q4

REPORT INFORMATION
  Report Type: Spontaneous
  Country: JP (occurrence: JP)
  Receive Date: 20161130
  Receipt Date: 20161201
  Transmission Date: 20170207
  Serious: Yes (Hospitalization)
  Sender: FDA-Public Use
  Company Number: JP-BAYER-2016-222746

PATIENT
  Age: 82 Year
  Sex: Male

DRUGS (2)
  1. OPIUM ALKALOIDS TOTAL [Concomitant]
     Indication: PAIN MANAGEMENT
  2. XOFIGO [Suspect]
     Active Substance: RADIUM RA-223 DICHLORIDE
     Indication: HORMONE-REFRACTORY PROSTATE CANCER
     Dosage: 55 KBQ/KG
     Route: 042
     Dates: start: 20161117

REACTIONS (1)
  - Bone pain [Recovering/Resolving]

NARRATIVE: CASE EVENT DATE: 20161118
